FAERS Safety Report 4465869-3 (Version None)
Quarter: 2004Q4

REPORT INFORMATION
  Report Type: 
  Country: None (occurrence: None)
  Receive Date: 20041001
  Receipt Date: 20041001
  Transmission Date: 20050328
  Serious: No
  Sender: FDA-Public Use
  Company Number: None

PATIENT
  Age: 28 Year
  Sex: Female
  Weight: 62.1428 kg

DRUGS (1)
  1. DEPO-PROVERA [Suspect]
     Indication: CONTRACEPTION
     Dosage: 90 DAYS INTRAVENOUS
     Route: 042

REACTIONS (6)
  - ABORTION SPONTANEOUS [None]
  - ANXIETY [None]
  - DEPRESSION [None]
  - FATIGUE [None]
  - NEOPLASM [None]
  - PROGESTERONE DECREASED [None]
